FAERS Safety Report 5456971-8 (Version None)
Quarter: 2007Q3

REPORT INFORMATION
  Report Type: 
  Country: None (occurrence: None)
  Receive Date: 20070918
  Receipt Date: 20070330
  Transmission Date: 20080115
  Serious: Yes (Other)
  Sender: FDA-Public Use
  Company Number: US-ASTRAZENECA-2006UW27753

PATIENT
  Sex: Female
  Weight: 81.8 kg

DRUGS (5)
  1. SEROQUEL [Suspect]
     Indication: DEPRESSION
     Route: 048
  2. ZYPREXA [Concomitant]
  3. PAROXETINE HCL [Concomitant]
  4. LAMICTAL [Concomitant]
  5. CLOMIPRAMINE HCL [Concomitant]

REACTIONS (3)
  - PANCREATITIS [None]
  - TARDIVE DYSKINESIA [None]
  - TYPE 2 DIABETES MELLITUS [None]
